FAERS Safety Report 18701515 (Version 1)
Quarter: 2021Q1

REPORT INFORMATION
  Report Type: Report from Study
  Country: US (occurrence: US)
  Receive Date: 20210105
  Receipt Date: 20210105
  Transmission Date: 20210419
  Serious: Yes (Hospitalization, Other)
  Sender: FDA-Public Use
  Company Number: US-GILEAD-2021-0511329

PATIENT
  Sex: Female

DRUGS (28)
  1. LANTUS [Concomitant]
     Active Substance: INSULIN GLARGINE
  2. OMEPRAZOLE. [Concomitant]
     Active Substance: OMEPRAZOLE
  3. METOCLOPRAMIDE. [Concomitant]
     Active Substance: METOCLOPRAMIDE
  4. PANCRELIPASE. [Concomitant]
     Active Substance: PANCRELIPASE
  5. SUDAFED NASAL DECONGESTANT MAXIMUM STRENGTH [Concomitant]
     Active Substance: PSEUDOEPHEDRINE HYDROCHLORIDE
  6. ALBUTEROL [SALBUTAMOL] [Concomitant]
     Active Substance: ALBUTEROL
  7. AZITHROMYCIN ANHYDROUS. [Concomitant]
     Active Substance: AZITHROMYCIN ANHYDROUS
  8. TRIKAFTA [Concomitant]
     Active Substance: ELEXACAFTOR\IVACAFTOR\TEZACAFTOR
  9. AZTREONAM LYSINE [Suspect]
     Active Substance: AZTREONAM LYSINE
     Indication: CYSTIC FIBROSIS LUNG
     Dosage: 75 MG, TID, FOR 28 DAYS, ALTERNATE EVERY MONTH
     Route: 055
     Dates: start: 20131108
  10. NOVOLOG [Concomitant]
     Active Substance: INSULIN ASPART
  11. MEPHYTON [Concomitant]
     Active Substance: PHYTONADIONE
  12. NASONEX [Concomitant]
     Active Substance: MOMETASONE FUROATE
  13. PULMOZYME [Concomitant]
     Active Substance: DORNASE ALFA
  14. SINGULAIR [Concomitant]
     Active Substance: MONTELUKAST SODIUM
  15. SYMBICORT [Concomitant]
     Active Substance: BUDESONIDE\FORMOTEROL FUMARATE DIHYDRATE
  16. TOBRAMYCIN. [Concomitant]
     Active Substance: TOBRAMYCIN
  17. VITAMIN E NOS [Concomitant]
     Active Substance: .ALPHA.-TOCOPHEROL
  18. XOPENEX HFA [Concomitant]
     Active Substance: LEVALBUTEROL TARTRATE
  19. BUPROPION. [Concomitant]
     Active Substance: BUPROPION
  20. GABAPENTIN. [Concomitant]
     Active Substance: GABAPENTIN
  21. HYDROXYZINE [Concomitant]
     Active Substance: HYDROXYZINE HYDROCHLORIDE
  22. TOBI PODHALER [Concomitant]
     Active Substance: TOBRAMYCIN
  23. VANCOMYCIN [Concomitant]
     Active Substance: VANCOMYCIN
  24. CALCIUM CARBONATE. [Concomitant]
     Active Substance: CALCIUM CARBONATE
  25. FERREX 150 FORTE [Concomitant]
     Active Substance: CYANOCOBALAMIN\FOLIC ACID\IRON
  26. LEVOTHYROXINE. [Concomitant]
     Active Substance: LEVOTHYROXINE
  27. MULTIVITAMINS [VITAMINS NOS] [Concomitant]
     Active Substance: VITAMINS
  28. RANITIDINE. [Concomitant]
     Active Substance: RANITIDINE

REACTIONS (2)
  - Cystic fibrosis [Unknown]
  - Mood swings [Not Recovered/Not Resolved]

NARRATIVE: CASE EVENT DATE: 20201202
